FAERS Safety Report 7889381-4 (Version None)
Quarter: 2011Q4

REPORT INFORMATION
  Report Type: 
  Country: None (occurrence: None)
  Receive Date: 20111103
  Receipt Date: 20111026
  Transmission Date: 20120403
  Serious: Yes (Other)
  Sender: FDA-Public Use
  Company Number: IT-JNJFOC-20110603784

PATIENT
  Age: 68 Year
  Sex: Female

DRUGS (11)
  1. FOLINA [Concomitant]
     Dosage: 3 TABLETS WEEKLY
     Route: 048
     Dates: start: 20020101
  2. METHOTREXATE [Concomitant]
     Route: 048
     Dates: start: 20020201
  3. OROTRE (CALCIUM CARBONATE/CHOLECALCIFEROL) [Concomitant]
     Route: 048
     Dates: start: 20110209
  4. REMICADE [Suspect]
     Indication: RHEUMATOID ARTHRITIS
     Route: 042
     Dates: start: 20050714, end: 20110311
  5. ASPIRIN [Concomitant]
     Route: 048
     Dates: start: 20080601
  6. TACHIDOL [Concomitant]
     Dates: start: 20100601
  7. RAMIPRIL [Concomitant]
     Dosage: TWO 2.5 MG TABLETS
     Route: 048
     Dates: start: 20110311
  8. AMITRIPTYLINE HCL [Concomitant]
     Dates: start: 20100601
  9. ACETAMINOPHEN [Concomitant]
  10. CELEBREX [Concomitant]
     Route: 048
  11. ATORVASTATIN CALCIUM [Concomitant]
     Route: 048
     Dates: start: 20110311

REACTIONS (3)
  - TREMOR [None]
  - PARKINSONISM [None]
  - HEAD TITUBATION [None]
